FAERS Safety Report 10837686 (Version 1)
Quarter: 2015Q1

REPORT INFORMATION
  Report Type: Spontaneous
  Country: JP (occurrence: None)
  Receive Date: 20150218
  Receipt Date: 20150218
  Transmission Date: 20150721
  Serious: Yes (Other)
  Sender: FDA-Public Use
  Company Number: AXC-2015-000066

PATIENT
  Sex: Female

DRUGS (5)
  1. CONIEL (BENDIPINE HYDROCHLORIDE) [Suspect]
     Active Substance: BENIDIPINE HYDROCHLORIDE
     Indication: HYPERTENSION
     Route: 048
  2. AMARYL [Suspect]
     Active Substance: GLIMEPIRIDE
     Indication: DIABETES MELLITUS
     Route: 048
  3. CRESTOR [Concomitant]
     Active Substance: ROSUVASTATIN CALCIUM
  4. JANUVIA [Suspect]
     Active Substance: SITAGLIPTIN PHOSPHATE
     Indication: DIABETES MELLITUS
     Route: 048
  5. URSODEOXYCHOLIC ACID (URSODEOXYCHOLIC ACID) [Suspect]
     Active Substance: URSODIOL
     Indication: HEPATIC STEATOSIS
     Route: 048
     Dates: start: 20140623, end: 201408

REACTIONS (2)
  - Off label use [None]
  - Renal impairment [None]

NARRATIVE: CASE EVENT DATE: 20140623
